FAERS Safety Report 7240969-3 (Version None)
Quarter: 2011Q1

REPORT INFORMATION
  Report Type: 
  Country: None (occurrence: None)
  Receive Date: 20110124
  Receipt Date: 20110120
  Transmission Date: 20110831
  Serious: Yes (Death, Hospitalization)
  Sender: FDA-Public Use
  Company Number: PHHY2009MX05942

PATIENT
  Sex: Female

DRUGS (1)
  1. RASILEZ [Suspect]
     Indication: HYPERTENSION
     Dosage: 150 MG (1 TABLET PER DAY)
     Route: 048
     Dates: start: 20081015, end: 20081201

REACTIONS (9)
  - DECREASED APPETITE [None]
  - CHROMATURIA [None]
  - HYPERTENSION [None]
  - RENAL FAILURE [None]
  - LIVER INJURY [None]
  - SOMNOLENCE [None]
  - HEPATIC FAILURE [None]
  - YELLOW SKIN [None]
  - FATIGUE [None]
